FAERS Safety Report 24408136 (Version 8)
Quarter: 2025Q1

REPORT INFORMATION
  Report Type: Spontaneous
  Country: US (occurrence: US)
  Receive Date: 20241007
  Receipt Date: 20250326
  Transmission Date: 20250408
  Serious: Yes (Other)
  Sender: PFIZER
  Company Number: US-PFIZER INC-202400269666

PATIENT
  Age: 74 Year
  Sex: Female
  Weight: 58.96 kg

DRUGS (4)
  1. TUKYSA [Suspect]
     Active Substance: TUCATINIB
     Indication: Breast cancer metastatic
     Dosage: 2 TABLETS TWICE DAILY
     Dates: start: 20240925, end: 202410
  2. TUKYSA [Suspect]
     Active Substance: TUCATINIB
     Dosage: 150 MG, 1X/DAY
     Route: 048
  3. TUKYSA [Suspect]
     Active Substance: TUCATINIB
     Dosage: 150MG; 1 TABLET DAILY
  4. CAPECITABINE [Suspect]
     Active Substance: CAPECITABINE
     Indication: Breast cancer metastatic
     Dosage: I TAKE 3 TABLETS BY MOUTH TWICE A DAY (EVERY MORNING AND EVERY NIGHT)
     Route: 048

REACTIONS (8)
  - Epistaxis [Unknown]
  - Burning sensation [Unknown]
  - Drug hypersensitivity [Unknown]
  - Rash [Unknown]
  - Off label use [Unknown]
  - Off label use [Unknown]
  - Off label use [Unknown]
  - Product use issue [Unknown]

NARRATIVE: CASE EVENT DATE: 20241002
